FAERS Safety Report 7968838-1 (Version None)
Quarter: 2011Q4

REPORT INFORMATION
  Report Type: 
  Country: None (occurrence: None)
  Receive Date: 20111209
  Receipt Date: 20111130
  Transmission Date: 20120403
  Serious: Yes (Hospitalization)
  Sender: FDA-Public Use
  Company Number: JP-CEPHALON-2010004497

PATIENT
  Sex: Male

DRUGS (11)
  1. TREANDA [Suspect]
     Indication: DIFFUSE LARGE B-CELL LYMPHOMA REFRACTORY
     Route: 042
     Dates: start: 20100419, end: 20100804
  2. RITUXIMAB [Suspect]
     Indication: DIFFUSE LARGE B-CELL LYMPHOMA REFRACTORY
     Route: 041
     Dates: start: 20100419, end: 20100802
  3. LENOGRASTIM [Concomitant]
     Dates: start: 20100809, end: 20100814
  4. MAGNESIUM OXIDE [Concomitant]
     Dates: start: 20110420, end: 20110816
  5. DEXAMETHASONE [Suspect]
     Dosage: 10-16.5 MG IV AND ORAL AS SUPPORTIVE THERAPY
     Dates: start: 20100419, end: 20100806
  6. FAMOTIDINE [Concomitant]
     Dates: start: 20100419, end: 20100815
  7. URSODIOL [Concomitant]
     Dates: start: 20100712, end: 20100815
  8. REBAMIPIDE [Concomitant]
     Dates: start: 20100419, end: 20100815
  9. SULFAMETHOXAZOLE AND TRIMETHOPRIM [Concomitant]
     Dates: start: 20100419, end: 20100815
  10. POVIDONE IODINE [Concomitant]
     Dates: end: 20100815
  11. ACYCLOVIR [Concomitant]
     Dates: start: 20100419, end: 20100815

REACTIONS (1)
  - PNEUMONIA CYTOMEGALOVIRAL [None]
